FAERS Safety Report 9786596 (Version 2)
Quarter: 2014Q1

REPORT INFORMATION
  Report Type: Spontaneous
  Country: US (occurrence: US)
  Receive Date: 20131227
  Receipt Date: 20140128
  Transmission Date: 20141002
  Serious: Yes (Hospitalization)
  Sender: FDA-Public Use
  Company Number: US-PFIZER INC-2013370486

PATIENT
  Age: 32 Year
  Sex: Female

DRUGS (2)
  1. DOXORUBICIN HCL [Suspect]
     Indication: LEUKAEMIA CUTIS
     Dosage: 35 MG/M2, DAYS 1 THROUGH 3
     Route: 042
  2. CYTOSINE ARABINOSIDE [Concomitant]
     Indication: LEUKAEMIA CUTIS
     Dosage: 100 MG/M2, DAYS 1 THROUGH 7
     Route: 042

REACTIONS (5)
  - Toxic epidermal necrolysis [Unknown]
  - Diarrhoea [Unknown]
  - Pyrexia [Not Recovered/Not Resolved]
  - Hypotension [Unknown]
  - Megacolon [Unknown]
